FAERS Safety Report 21411548 (Version 1)
Quarter: 2022Q4

REPORT INFORMATION
  Report Type: Spontaneous
  Country: JP (occurrence: JP)
  Receive Date: 20221005
  Receipt Date: 20221005
  Transmission Date: 20230112
  Serious: Yes (Other)
  Sender: FDA-Public Use
  Company Number: JP-PFIZER INC-202201196100

PATIENT

DRUGS (1)
  1. SULFASALAZINE [Suspect]
     Active Substance: SULFASALAZINE
     Route: 048

REACTIONS (3)
  - Pancytopenia [Unknown]
  - Vitamin B12 deficiency [Unknown]
  - Anaemia [Unknown]
